FAERS Safety Report 15458663 (Version 1)
Quarter: 2018Q3

REPORT INFORMATION
  Report Type: Spontaneous
  Country: US (occurrence: US)
  Receive Date: 20180930
  Receipt Date: 20180930
  Transmission Date: 20181010
  Serious: Yes (Death)
  Sender: FDA-Public Use
  Company Number: None

PATIENT
  Sex: Female

DRUGS (9)
  1. IBRANCE [Suspect]
     Active Substance: PALBOCICLIB
     Indication: MALIGNANT NIPPLE NEOPLASM FEMALE
     Route: 048
     Dates: start: 20180116
  2. VESICARE [Concomitant]
     Active Substance: SOLIFENACIN SUCCINATE
  3. CARVEDILOL. [Concomitant]
     Active Substance: CARVEDILOL
  4. LOSARTAN. [Concomitant]
     Active Substance: LOSARTAN
  5. PRAVASTATIN. [Concomitant]
     Active Substance: PRAVASTATIN
  6. XGEVA [Concomitant]
     Active Substance: DENOSUMAB
  7. LEVOTHYROXINE. [Concomitant]
     Active Substance: LEVOTHYROXINE
  8. LETROZOLE. [Concomitant]
     Active Substance: LETROZOLE
  9. NAMZARIC [Concomitant]
     Active Substance: DONEPEZIL HYDROCHLORIDE\MEMANTINE HYDROCHLORIDE

REACTIONS (1)
  - Death [None]
